FAERS Safety Report 8863197 (Version 1)
Quarter: 2012Q4

REPORT INFORMATION
  Report Type: 
  Country: US (occurrence: US)
  Receive Date: 20121025
  Receipt Date: 20121025
  Transmission Date: 20130627
  Serious: No
  Sender: FDA-Public Use
  Company Number: US-VERTEX PHARMACEUTICAL INC.-2012-023425

PATIENT
  Sex: Male

DRUGS (6)
  1. VX-950 [Suspect]
     Indication: HEPATITIS C
     Dosage: 750 mg, tid
     Route: 048
  2. PEGASYS [Suspect]
     Indication: HEPATITIS C
     Dosage: 180 ?g, UNK
  3. RIBAPAK [Suspect]
     Indication: HEPATITIS C
  4. AZOR                               /00595201/ [Concomitant]
  5. CIALIS [Concomitant]
     Dosage: 10 mg, UNK
  6. VIAGRA [Concomitant]

REACTIONS (1)
  - Pruritus [Unknown]
